FAERS Safety Report 20912671 (Version 2)
Quarter: 2024Q3

REPORT INFORMATION
  Report Type: Spontaneous
  Country: FR (occurrence: FR)
  Receive Date: 20220603
  Receipt Date: 20240822
  Transmission Date: 20241017
  Serious: Yes (Hospitalization)
  Sender: ABBVIE
  Company Number: None

PATIENT
  Age: 67 Year
  Sex: Female
  Weight: 94 kg

DRUGS (2)
  1. RINVOQ [Suspect]
     Active Substance: UPADACITINIB
     Indication: Rheumatoid arthritis
     Route: 048
     Dates: start: 20210709, end: 20220513
  2. METHOTREXATE SODIUM [Suspect]
     Active Substance: METHOTREXATE SODIUM
     Indication: Rheumatoid arthritis
     Dosage: 20MG/0.8 ML
     Route: 058
     Dates: start: 202002

REACTIONS (1)
  - Portosplenomesenteric venous thrombosis [Recovered/Resolved]

NARRATIVE: CASE EVENT DATE: 20220512
